FAERS Safety Report 5216944-7 (Version None)
Quarter: 2007Q1

REPORT INFORMATION
  Report Type: 
  Country: None (occurrence: None)
  Receive Date: 20070119
  Receipt Date: 20070111
  Transmission Date: 20070707
  Serious: Yes (Other)
  Sender: FDA-Public Use
  Company Number: GXKR2007GB00744

PATIENT
  Age: 56 Year
  Sex: Female

DRUGS (3)
  1. OMEPRAZOLE [Suspect]
     Indication: OESOPHAGITIS
     Dosage: 20 MG, QD, ORAL
     Route: 048
     Dates: start: 20060505, end: 20061025
  2. ASACOL [Concomitant]
  3. LEVOTHYROXINE SODIUM [Concomitant]

REACTIONS (4)
  - CHEST PAIN [None]
  - CONTUSION [None]
  - DYSPNOEA [None]
  - FATIGUE [None]
